FAERS Safety Report 10504297 (Version 1)
Quarter: 2014Q4

REPORT INFORMATION
  Report Type: Spontaneous
  Country: TR (occurrence: TR)
  Receive Date: 20141008
  Receipt Date: 20141008
  Transmission Date: 20150528
  Serious: No
  Sender: FDA-Public Use
  Company Number: TR-JNJFOC-20140926043

PATIENT

DRUGS (1)
  1. DUROGESIC [Suspect]
     Active Substance: FENTANYL
     Indication: CANCER PAIN
     Route: 062

REACTIONS (4)
  - Constipation [Unknown]
  - Wrong technique in drug usage process [Unknown]
  - Nausea [Unknown]
  - Vomiting [Unknown]
